FAERS Safety Report 5659542-3 (Version None)
Quarter: 2008Q1

REPORT INFORMATION
  Report Type: 
  Country: None (occurrence: None)
  Receive Date: 20080311
  Receipt Date: 20080304
  Transmission Date: 20080703
  Serious: Yes (Other)
  Sender: FDA-Public Use
  Company Number: US-ASTRAZENECA-2008UW03435

PATIENT
  Age: 48 Year
  Sex: Female
  Weight: 48.1 kg

DRUGS (4)
  1. CRESTOR [Suspect]
     Indication: BLOOD CHOLESTEROL INCREASED
     Route: 048
     Dates: start: 20070901, end: 20080201
  2. VERAPAMIL [Concomitant]
  3. TOPROL [Concomitant]
     Route: 048
  4. NITROGLYCERIN [Concomitant]

REACTIONS (5)
  - HEADACHE [None]
  - HYPOAESTHESIA [None]
  - HYPOAESTHESIA FACIAL [None]
  - MUSCULAR WEAKNESS [None]
  - PARAESTHESIA [None]
